FAERS Safety Report 20882091 (Version 2)
Quarter: 2022Q2

REPORT INFORMATION
  Report Type: Spontaneous
  Country: JP (occurrence: JP)
  Receive Date: 20220527
  Receipt Date: 20220620
  Transmission Date: 20220720
  Serious: Yes (Hospitalization)
  Sender: FDA-Public Use
  Company Number: JP-CHUGAI-2022009693

PATIENT
  Age: 78 Year
  Sex: Male
  Weight: 47 kg

DRUGS (7)
  1. AVASTIN [Suspect]
     Active Substance: BEVACIZUMAB
     Indication: Rectosigmoid cancer
     Route: 041
     Dates: start: 20220113, end: 20220224
  2. OXALIPLATIN [Concomitant]
     Active Substance: OXALIPLATIN
     Indication: Rectosigmoid cancer
     Dosage: 90 MILLIGRAM, ONCE/2WEEKS
     Route: 041
     Dates: start: 20220113, end: 20220224
  3. LEVOLEUCOVORIN CALCIUM [Concomitant]
     Active Substance: LEVOLEUCOVORIN CALCIUM
     Indication: Rectosigmoid cancer
     Dosage: 300 MILLIGRAM, ONCE/2WEEKS
     Route: 041
     Dates: start: 20220113, end: 20220224
  4. FLUOROURACIL [Concomitant]
     Active Substance: FLUOROURACIL
     Indication: Rectosigmoid cancer
     Dosage: UNK UNK, SINGLE
     Route: 040
     Dates: start: 20220113, end: 20220113
  5. FLUOROURACIL [Concomitant]
     Active Substance: FLUOROURACIL
     Dosage: 450 MILLIGRAM, SINGLE
     Route: 041
     Dates: start: 20220113, end: 20220113
  6. FLUOROURACIL [Concomitant]
     Active Substance: FLUOROURACIL
     Dosage: UNK UNK, ONCE/2WEEKS
     Route: 040
     Dates: start: 20220113, end: 20220224
  7. FLUOROURACIL [Concomitant]
     Active Substance: FLUOROURACIL
     Dosage: 3750 MILLIGRAM, ONCE/2WEEKS
     Route: 041
     Dates: start: 20220113, end: 20220224

REACTIONS (2)
  - Rectal perforation [Recovered/Resolved with Sequelae]
  - COVID-19 pneumonia [Recovered/Resolved]

NARRATIVE: CASE EVENT DATE: 20220227
